FAERS Safety Report 17869592 (Version 1)
Quarter: 2020Q2

REPORT INFORMATION
  Report Type: Spontaneous
  Country: US (occurrence: US)
  Receive Date: 20200608
  Receipt Date: 20200608
  Transmission Date: 20200714
  Serious: No
  Sender: FDA-Public Use
  Company Number: US-009507513-2006USA001751

PATIENT
  Age: 30 Year
  Sex: Female
  Weight: 57 kg

DRUGS (1)
  1. NEXPLANON [Suspect]
     Active Substance: ETONOGESTREL
     Indication: CONTRACEPTION
     Dosage: 1 DOSAGE FORM, INNER SIDE OF THE NON-DOMINATING ARM
     Route: 059
     Dates: start: 20190903, end: 20200603

REACTIONS (2)
  - Device expulsion [Recovered/Resolved]
  - Impaired healing [Not Recovered/Not Resolved]

NARRATIVE: CASE EVENT DATE: 20200603
